FAERS Safety Report 6551549-7 (Version None)
Quarter: 2010Q1

REPORT INFORMATION
  Report Type: 
  Country: None (occurrence: None)
  Receive Date: 20100126
  Receipt Date: 20100114
  Transmission Date: 20100710
  Serious: Yes (Hospitalization, Other)
  Sender: FDA-Public Use
  Company Number: PHEH2007US06920

PATIENT
  Sex: Female
  Weight: 58.049 kg

DRUGS (41)
  1. COMBIPATCH [Suspect]
     Indication: MENOPAUSE
     Dosage: .05MG-0.14 EVERY 3 DAYS
     Route: 062
     Dates: start: 20020822, end: 20030610
  2. COMBIPATCH [Suspect]
     Indication: HORMONE REPLACEMENT THERAPY
  3. PREMPRO [Suspect]
     Indication: MENOPAUSE
     Dosage: 0.625 MG, UNK
     Dates: start: 19970211, end: 20030601
  4. PREMPRO [Suspect]
     Dosage: 2.5 MG, UNK
  5. PREMARIN [Suspect]
  6. WELLBUTRIN [Concomitant]
     Dosage: UNK, UNK
     Route: 048
     Dates: start: 20010501
  7. LEXAPRO [Concomitant]
     Dosage: 10 MG, UNK
     Route: 048
     Dates: start: 20060801
  8. XANAX [Concomitant]
     Dosage: 0.5 MG, UNK
     Route: 048
     Dates: start: 20030101
  9. TRAZODONE [Concomitant]
     Dosage: 50 MG, UNK
     Route: 048
     Dates: start: 19960101
  10. ZOLOFT [Concomitant]
     Indication: DEPRESSION
     Route: 048
  11. COVERA-HS [Concomitant]
     Indication: DEPRESSION
     Route: 048
     Dates: start: 19970101
  12. LUVOX [Concomitant]
     Indication: DEPRESSION
     Route: 048
     Dates: start: 19970101
  13. SERZONE [Concomitant]
     Indication: DEPRESSION
     Dosage: UNK, UNK
     Route: 048
     Dates: start: 20010101
  14. REMERON [Concomitant]
     Indication: DEPRESSION
     Route: 048
     Dates: start: 20010101
  15. BUSPAR [Concomitant]
     Indication: DEPRESSION
     Route: 048
     Dates: start: 20010101
  16. CELEXA [Concomitant]
     Indication: DEPRESSION
     Dosage: 40 MG, QD
     Route: 048
     Dates: start: 20020501
  17. PROZAC [Concomitant]
     Indication: DEPRESSION
  18. DESYREL [Concomitant]
     Indication: DEPRESSION
  19. NICOTROL [Concomitant]
     Dosage: 15 MG, UNK
     Route: 062
     Dates: start: 19960101
  20. NICOTROL [Concomitant]
     Dosage: 10 MG, UNK
     Route: 062
  21. ACETAMINOPHEN AND HYDROCODONE BITARTRATE [Concomitant]
     Dosage: 500 / 5 MG
     Dates: start: 20060401
  22. ESTRATEST [Concomitant]
     Dosage: 0.625/1.25
     Dates: start: 19990201
  23. PREVPAC [Concomitant]
     Dosage: UNK
     Dates: start: 20020301
  24. TOPROL-XL [Concomitant]
     Dosage: 25 MG, 1/2 TABLET DAILY
     Dates: start: 20060915
  25. FERROUS GLUCONATE [Concomitant]
     Dosage: 325 MG, UNK
     Dates: start: 20070427
  26. FEMARA [Concomitant]
     Dosage: UNK
     Dates: start: 20070516
  27. BACTRIM DS [Concomitant]
     Dosage: TWICE DAILY FOR 7 DAYS
     Dates: start: 20070521
  28. NEXIUM [Concomitant]
     Dosage: 40 MG, QD
  29. PREVACID [Concomitant]
     Dosage: 30 MG, QD
  30. MILK THISTLE [Concomitant]
     Dosage: 60 MG, BID
     Dates: start: 20070720
  31. FOLATE SODIUM [Concomitant]
     Dosage: 1 MG, QD
     Dates: start: 20070720
  32. EVISTA [Concomitant]
     Dosage: 60 MG, QD
     Dates: start: 20080528
  33. POTASSIUM [Concomitant]
     Dosage: UNK
  34. MULTI-VITAMINS [Concomitant]
  35. CALCIUM [Concomitant]
     Dosage: 1000 MG, QD
  36. CALCIUM [Concomitant]
     Dosage: UNK
  37. PERCOCET [Concomitant]
     Dosage: 5/325MG, 1-2 TABLETS Q6H
     Dates: start: 20030701
  38. LISINOPRIL [Concomitant]
     Dosage: 20 MG, UNK
     Dates: start: 20060509
  39. LISINOPRIL [Concomitant]
     Dosage: 20 MG, UNK
  40. ROZEREM [Concomitant]
     Indication: SLEEP DISORDER
     Dosage: 8 MG, QHS
  41. ASPIRIN [Concomitant]
     Dosage: 81 MG, UNK

REACTIONS (80)
  - ALANINE AMINOTRANSFERASE INCREASED [None]
  - ANAEMIA [None]
  - ARTHRALGIA [None]
  - ASPARTATE AMINOTRANSFERASE INCREASED [None]
  - ASPIRATION BREAST [None]
  - ATELECTASIS [None]
  - ATROPHIC VULVOVAGINITIS [None]
  - BILIRUBIN CONJUGATED INCREASED [None]
  - BIOPSY BREAST [None]
  - BIOPSY BREAST ABNORMAL [None]
  - BIOPSY ENDOMETRIUM [None]
  - BIOPSY LYMPH GLAND ABNORMAL [None]
  - BLOOD ALKALINE PHOSPHATASE INCREASED [None]
  - BLOOD BILIRUBIN INCREASED [None]
  - BLOOD CHOLESTEROL INCREASED [None]
  - BLOOD PRESSURE INCREASED [None]
  - BLOOD TRIGLYCERIDES INCREASED [None]
  - BONE DENSITY DECREASED [None]
  - BREAST CANCER [None]
  - BREAST CELLULITIS [None]
  - BREAST DISORDER FEMALE [None]
  - BREAST FIBROSIS [None]
  - BREAST HAEMATOMA [None]
  - BREAST HYPERPLASIA [None]
  - BREAST LUMP REMOVAL [None]
  - BREAST MASS [None]
  - BREAST PAIN [None]
  - BURSITIS [None]
  - COUGH [None]
  - DERMAL CYST [None]
  - ENDOMETRIAL HYPERTROPHY [None]
  - ERYTHEMA [None]
  - FALL [None]
  - FATIGUE [None]
  - FIBROCYSTIC BREAST DISEASE [None]
  - GAMMA-GLUTAMYLTRANSFERASE INCREASED [None]
  - HEPATIC STEATOSIS [None]
  - HEPATITIS C [None]
  - HEPATOMEGALY [None]
  - HOT FLUSH [None]
  - HYPERLIPIDAEMIA [None]
  - HYPOKALAEMIA [None]
  - IMPAIRED FASTING GLUCOSE [None]
  - INFLUENZA LIKE ILLNESS [None]
  - INSOMNIA [None]
  - JAUNDICE [None]
  - MACROCYTOSIS [None]
  - MARROW HYPERPLASIA [None]
  - MASTECTOMY [None]
  - MUSCLE SPASMS [None]
  - MUSCULOSKELETAL CHEST PAIN [None]
  - NASAL CONGESTION [None]
  - NAUSEA [None]
  - NIGHT SWEATS [None]
  - OESTRADIOL DECREASED [None]
  - OSTEOPENIA [None]
  - PAIN IN EXTREMITY [None]
  - PLEURAL EFFUSION [None]
  - PLEURAL FIBROSIS [None]
  - PLEURITIC PAIN [None]
  - PNEUMOTHORAX [None]
  - POSTMENOPAUSAL HAEMORRHAGE [None]
  - RASH PRURITIC [None]
  - REFLUX GASTRITIS [None]
  - SCAR [None]
  - SECRETION DISCHARGE [None]
  - SEROMA [None]
  - SKIN HYPERTROPHY [None]
  - SKIN INDURATION [None]
  - SKIN SWELLING [None]
  - STRESS URINARY INCONTINENCE [None]
  - TACHYCARDIA [None]
  - TUMOUR MARKER INCREASED [None]
  - UPPER RESPIRATORY TRACT INFLAMMATION [None]
  - URINARY TRACT INFECTION [None]
  - UTERINE CERVICAL SQUAMOUS METAPLASIA [None]
  - UTERINE HAEMORRHAGE [None]
  - UTERINE LEIOMYOMA [None]
  - VOMITING [None]
  - VULVOVAGINAL CANDIDIASIS [None]
